FAERS Safety Report 9705553 (Version 1)
Quarter: 2013Q4

REPORT INFORMATION
  Report Type: Spontaneous
  Country: US (occurrence: US)
  Receive Date: 20131122
  Receipt Date: 20131122
  Transmission Date: 20140711
  Serious: No
  Sender: FDA-Public Use
  Company Number: US-GILEAD-2008-0016913

PATIENT
  Age: 66 Year
  Sex: Female

DRUGS (9)
  1. LETAIRIS [Suspect]
     Indication: PULMONARY ARTERIAL HYPERTENSION
     Route: 048
     Dates: start: 20080526
  2. REVATIO [Concomitant]
  3. DIGITEK [Concomitant]
  4. ENALAPRIL [Concomitant]
  5. FUROSEMIDE [Concomitant]
  6. ALLOPURINOL [Concomitant]
  7. ASPIRIN [Concomitant]
  8. VITAMIN C [Concomitant]
  9. VITAMIN E [Concomitant]

REACTIONS (1)
  - Local swelling [Not Recovered/Not Resolved]
